FAERS Safety Report 9499502 (Version 1)
Quarter: 2013Q3

REPORT INFORMATION
  Report Type: Spontaneous
  Country: TR (occurrence: None)
  Receive Date: 20130903
  Receipt Date: 20130903
  Transmission Date: 20140515
  Serious: Yes (Death)
  Sender: FDA-Public Use
  Company Number: SYM-2013-10006

PATIENT
  Sex: 0

DRUGS (5)
  1. FLUOROURACIL (FLUOROURACIL) (FLUOROURACIL) [Suspect]
     Indication: ADENOCARCINOMA GASTRIC
     Route: 040
  2. CISPLATIN (CISPLATIN) (CISPLATIN) [Suspect]
     Route: 042
  3. DOCETAXEL [Suspect]
     Indication: ADENOCARCINOMA GASTRIC
     Route: 042
  4. LEUCOVORIN (FOLINIC ACID) (FOLINIC ACID) [Suspect]
     Indication: ADENOCARCINOMA GASTRIC
     Route: 042
  5. GRANULOCYTE COLONY STIMULATING FACTOR [Concomitant]

REACTIONS (3)
  - Neutropenia [None]
  - Pneumonia [None]
  - Toxicity to various agents [None]
